FAERS Safety Report 25202225 (Version 1)
Quarter: 2025Q2

REPORT INFORMATION
  Report Type: Spontaneous
  Country: BG (occurrence: BG)
  Receive Date: 20250416
  Receipt Date: 20250416
  Transmission Date: 20250716
  Serious: Yes (Other)
  Sender: RISING PHARMACEUTICALS
  Company Number: BG-RISINGPHARMA-BG-2025RISLIT00183

PATIENT
  Age: 91 Year
  Sex: Male

DRUGS (4)
  1. PROPAFENONE HYDROCHLORIDE [Suspect]
     Active Substance: PROPAFENONE HYDROCHLORIDE
     Indication: Product used for unknown indication
     Route: 065
     Dates: start: 2023
  2. BISOPROLOL FUMARATE [Suspect]
     Active Substance: BISOPROLOL FUMARATE
     Indication: Product used for unknown indication
     Route: 065
     Dates: start: 2023
  3. APIXABAN [Suspect]
     Active Substance: APIXABAN
     Indication: Product used for unknown indication
     Route: 065
     Dates: start: 2023
  4. SPIRONOLACTONE [Suspect]
     Active Substance: SPIRONOLACTONE
     Indication: Product used for unknown indication
     Route: 065
     Dates: start: 2023

REACTIONS (5)
  - Leukoplakia oral [Unknown]
  - Squamous cell carcinoma [Unknown]
  - Pemphigus [Unknown]
  - Oral lichen planus [Unknown]
  - Lichen planus [Unknown]
